FAERS Safety Report 9314386 (Version 1)
Quarter: 2013Q2

REPORT INFORMATION
  Report Type: Report from Study
  Country: CA (occurrence: CA)
  Receive Date: 20130529
  Receipt Date: 20130529
  Transmission Date: 20140414
  Serious: Yes (Death)
  Sender: FDA-Public Use
  Company Number: CA-ROCHE-1228891

PATIENT
  Sex: Male

DRUGS (6)
  1. ZELBORAF [Suspect]
     Indication: METASTATIC MALIGNANT MELANOMA
     Route: 048
  2. LEVETIRACETAM [Concomitant]
     Route: 065
  3. PMS-DEXAMETHASONE [Concomitant]
     Route: 065
  4. APO-NAPROXEN [Concomitant]
     Route: 065
  5. DILAUDID [Concomitant]
     Route: 065
  6. TEVA-PANTOPRAZOLE [Concomitant]
     Route: 065

REACTIONS (1)
  - Death [Fatal]
